FAERS Safety Report 4803428-0 (Version None)
Quarter: 2005Q4

REPORT INFORMATION
  Report Type: 
  Country: None (occurrence: None)
  Receive Date: 20051013
  Receipt Date: 20051003
  Transmission Date: 20060501
  Serious: Yes (Hospitalization, Disabling, Other)
  Sender: FDA-Public Use
  Company Number: TPA2005A01202

PATIENT
  Age: 61 Year
  Sex: Female

DRUGS (2)
  1. ACTOS [Suspect]
     Indication: DIABETES MELLITUS
     Dosage: PER ORAL
     Route: 048
     Dates: start: 20040101
  2. HUMULIN 70/30 (HUMULIN 70/30) (INJECTION) [Concomitant]

REACTIONS (7)
  - CATARACT [None]
  - CONDITION AGGRAVATED [None]
  - DYSPNOEA [None]
  - RESPIRATORY DISORDER [None]
  - RETINAL HAEMORRHAGE [None]
  - SWELLING [None]
  - VISUAL DISTURBANCE [None]
